FAERS Safety Report 9602031 (Version 1)
Quarter: 2013Q4

REPORT INFORMATION
  Report Type: Spontaneous
  Country: US (occurrence: US)
  Receive Date: 20131007
  Receipt Date: 20131007
  Transmission Date: 20140711
  Serious: Yes (Other)
  Sender: FDA-Public Use
  Company Number: US-UCBSA-099136

PATIENT
  Sex: Male
  Weight: 13.61 kg

DRUGS (3)
  1. VIMPAT [Suspect]
     Dosage: UNKNOWN DOSE
  2. KEPPRA [Suspect]
     Indication: CONVULSION
     Dosage: UNKNOWN DOSE
  3. KEPPRA [Suspect]
     Indication: CONVULSION
     Dosage: INCREASED DOSE

REACTIONS (6)
  - Psychotic behaviour [Recovering/Resolving]
  - Hyperkinesia [Recovering/Resolving]
  - Speech disorder [Recovering/Resolving]
  - Mobility decreased [Recovering/Resolving]
  - Rash [Unknown]
  - Drug ineffective [Unknown]
